FAERS Safety Report 11068726 (Version 1)
Quarter: 2015Q2

REPORT INFORMATION
  Report Type: Spontaneous
  Country: JP (occurrence: JP)
  Receive Date: 20150427
  Receipt Date: 20150427
  Transmission Date: 20150821
  Serious: Yes (Hospitalization, Other)
  Sender: FDA-Public Use
  Company Number: JP-PFIZER INC-2015124208

PATIENT
  Sex: Female
  Weight: 3 kg

DRUGS (3)
  1. MEDICON [Concomitant]
     Active Substance: DEXTROMETHORPHAN HYDROBROMIDE
     Dosage: UNK
     Route: 064
  2. JZOLOFT OD [Suspect]
     Active Substance: SERTRALINE HYDROCHLORIDE
     Indication: DEPRESSION
     Dosage: 50 MG, 1X/DAY
     Route: 064
     Dates: start: 201308
  3. BAKUMONDO-TO [Concomitant]
     Active Substance: HERBALS
     Dosage: UNK
     Route: 064

REACTIONS (5)
  - Caesarean section [None]
  - Pneumothorax [Recovered/Resolved]
  - Maternal drugs affecting foetus [None]
  - Maternal exposure during pregnancy [Recovered/Resolved]
  - Persistent foetal circulation [Recovered/Resolved]

NARRATIVE: CASE EVENT DATE: 20150403
